FAERS Safety Report 8008844-4 (Version None)
Quarter: 2011Q4

REPORT INFORMATION
  Report Type: 
  Country: None (occurrence: None)
  Receive Date: 20111227
  Receipt Date: 20111219
  Transmission Date: 20120403
  Serious: Yes (Hospitalization, Other)
  Sender: FDA-Public Use
  Company Number: US-BAYER-200938978NA

PATIENT
  Age: 40 Year
  Sex: Female
  Weight: 86 kg

DRUGS (3)
  1. YAZ [Suspect]
     Indication: MENSTRUATION IRREGULAR
  2. YAZ [Suspect]
     Indication: PREMENSTRUAL SYNDROME
     Dosage: UNK UNK, UNK
     Route: 048
     Dates: start: 20080101, end: 20090401
  3. YAZ [Suspect]
     Dosage: UNK UNK, QD
     Route: 048
     Dates: start: 20080701, end: 20090315

REACTIONS (4)
  - GAIT DISTURBANCE [None]
  - DEEP VEIN THROMBOSIS [None]
  - PAIN IN EXTREMITY [None]
  - INTRACARDIAC THROMBUS [None]
